FAERS Safety Report 18137221 (Version 2)
Quarter: 2020Q3

REPORT INFORMATION
  Report Type: Spontaneous
  Country: US (occurrence: US)
  Receive Date: 20200811
  Receipt Date: 20200820
  Transmission Date: 20201103
  Serious: Yes (Hospitalization, Other)
  Sender: FDA-Public Use
  Company Number: US-JNJFOC-20200812838

PATIENT
  Age: 68 Year
  Sex: Male

DRUGS (3)
  1. OPSUMIT [Suspect]
     Active Substance: MACITENTAN
     Indication: PULMONARY ARTERIAL HYPERTENSION
     Route: 048
     Dates: start: 20180926
  2. SILDENAFIL. [Concomitant]
     Active Substance: SILDENAFIL
  3. XARELTO [Suspect]
     Active Substance: RIVAROXABAN
     Indication: PRODUCT USED FOR UNKNOWN INDICATION
     Route: 048

REACTIONS (5)
  - Melaena [Recovering/Resolving]
  - Duodenal ulcer [Unknown]
  - Coronary artery occlusion [Unknown]
  - Gastritis [Unknown]
  - Haemorrhage [Recovering/Resolving]
